FAERS Safety Report 9259107 (Version 1)
Quarter: 2013Q2

REPORT INFORMATION
  Report Type: Spontaneous
  Country: US (occurrence: US)
  Receive Date: 20130426
  Receipt Date: 20130426
  Transmission Date: 20140414
  Serious: No
  Sender: FDA-Public Use
  Company Number: US-009507513-1304USA014964

PATIENT
  Age: 77 Year
  Sex: Female

DRUGS (1)
  1. AZASITE [Suspect]
     Indication: EYE PRURITUS
     Dosage: 1 GTT, QD
     Route: 047
     Dates: start: 20130316, end: 20130317

REACTIONS (1)
  - Eye burns [Recovered/Resolved]
